FAERS Safety Report 7519391-8 (Version None)
Quarter: 2011Q2

REPORT INFORMATION
  Report Type: 
  Country: None (occurrence: None)
  Receive Date: 20110602
  Receipt Date: 20110526
  Transmission Date: 20111010
  Serious: Yes (Other)
  Sender: FDA-Public Use
  Company Number: CA-PFIZER INC-2011112970

PATIENT
  Age: 64 Year
  Sex: Female

DRUGS (1)
  1. XALATAN [Suspect]
     Indication: GLAUCOMA
     Dosage: 1 DROP IN EACH EYE , 1X/DAY, AT BEDTIME
     Route: 047

REACTIONS (3)
  - EYE IRRITATION [None]
  - HYPERSENSITIVITY [None]
  - NEOPLASM MALIGNANT [None]
